FAERS Safety Report 6511927-9 (Version None)
Quarter: 2009Q4

REPORT INFORMATION
  Report Type: 
  Country: None (occurrence: None)
  Receive Date: 20091222
  Receipt Date: 20090615
  Transmission Date: 20100525
  Serious: No
  Sender: FDA-Public Use
  Company Number: US-ASTRAZENECA-2009UW15274

PATIENT
  Age: 60 Year
  Sex: Female

DRUGS (3)
  1. CRESTOR [Suspect]
     Indication: BLOOD CHOLESTEROL INCREASED
     Route: 048
     Dates: start: 20090609
  2. PRILOSEC [Concomitant]
  3. PREMPRO [Concomitant]

REACTIONS (3)
  - HOT FLUSH [None]
  - HYPERSENSITIVITY [None]
  - PARAESTHESIA [None]
